FAERS Safety Report 5496773-X (Version None)
Quarter: 2007Q4

REPORT INFORMATION
  Report Type: 
  Country: None (occurrence: None)
  Receive Date: 20071025
  Receipt Date: 20070813
  Transmission Date: 20080405
  Serious: No
  Sender: FDA-Public Use
  Company Number: A0669803A

PATIENT
  Age: 70 Year
  Sex: Female

DRUGS (12)
  1. ADVAIR DISKUS 100/50 [Suspect]
     Indication: CHRONIC OBSTRUCTIVE PULMONARY DISEASE
     Dosage: 1PUFF TWICE PER DAY
     Route: 055
     Dates: start: 20060101
  2. ZOMETA [Concomitant]
  3. COUMADIN [Concomitant]
  4. SYNTHROID [Concomitant]
  5. ZYRTEC [Concomitant]
  6. CRESTOR [Concomitant]
  7. ZETIA [Concomitant]
  8. TRICOR [Concomitant]
  9. LORAZEPAM [Concomitant]
  10. ACIPHEX [Concomitant]
  11. LEXAPRO [Concomitant]
  12. ALBUTEROL [Concomitant]

REACTIONS (1)
  - GLOSSODYNIA [None]
